FAERS Safety Report 18598401 (Version 7)
Quarter: 2021Q2

REPORT INFORMATION
  Report Type: Spontaneous
  Country: CA (occurrence: CA)
  Receive Date: 20201209
  Receipt Date: 20210615
  Transmission Date: 20210717
  Serious: Yes (Hospitalization, Other)
  Sender: FDA-Public Use
  Company Number: CA-CELLTRION INC.-2019CA028050

PATIENT

DRUGS (13)
  1. INFLECTRA [Suspect]
     Active Substance: INFLIXIMAB-DYYB
     Indication: CROHN^S DISEASE
     Dosage: 1100 MG, (EVERY 8 WEEKS)
     Route: 042
     Dates: start: 20200110
  2. INFLECTRA [Suspect]
     Active Substance: INFLIXIMAB-DYYB
     Dosage: 1100 MG EVERY 8 WEEKS
     Route: 042
     Dates: start: 20201216
  3. METHOTREXATE. [Concomitant]
     Active Substance: METHOTREXATE
     Dosage: 15 MG, WEEKLY
     Route: 065
  4. INFLECTRA [Suspect]
     Active Substance: INFLIXIMAB-DYYB
     Dosage: 1100 MG, (EVERY 8 WEEKS)
     Route: 042
     Dates: start: 20200305
  5. INFLECTRA [Suspect]
     Active Substance: INFLIXIMAB-DYYB
     Dosage: 1100 MG EVERY 8 WEEKS
     Route: 042
     Dates: start: 20201007
  6. INFLECTRA [Suspect]
     Active Substance: INFLIXIMAB-DYYB
     Dosage: 1100 MG EVERY 8 WEEKS
     Route: 042
     Dates: start: 20210210
  7. INFLECTRA [Suspect]
     Active Substance: INFLIXIMAB-DYYB
     Dosage: 1100 MG EVERY 8 WEEKS
     Route: 042
     Dates: start: 20210409
  8. INFLECTRA [Suspect]
     Active Substance: INFLIXIMAB-DYYB
     Dosage: 1100 MG EVERY 8 WEEKS
     Route: 042
     Dates: start: 20210602
  9. INFLECTRA [Suspect]
     Active Substance: INFLIXIMAB-DYYB
     Dosage: 1100 MG, (EVERY 8 WEEKS)
     Route: 042
     Dates: start: 20200625
  10. INFLECTRA [Suspect]
     Active Substance: INFLIXIMAB-DYYB
     Dosage: 1100 MG EVERY 8 WEEKS
     Route: 042
     Dates: start: 20200814
  11. INFLECTRA [Suspect]
     Active Substance: INFLIXIMAB-DYYB
     Dosage: 1100 MG, (EVERY 8 WEEKS)
     Route: 042
     Dates: start: 20200428
  12. INFLECTRA [Suspect]
     Active Substance: INFLIXIMAB-DYYB
     Dosage: 1100 MG, (EVERY 8 WEEKS)
     Route: 042
     Dates: start: 20200625
  13. INFLECTRA [Suspect]
     Active Substance: INFLIXIMAB-DYYB
     Dosage: 1100 MG EVERY 8 WEEKS
     Route: 042
     Dates: start: 20210409

REACTIONS (10)
  - Drug level above therapeutic [Unknown]
  - Condition aggravated [Not Recovered/Not Resolved]
  - Intestinal obstruction [Recovering/Resolving]
  - Blood pressure fluctuation [Not Recovered/Not Resolved]
  - Intentional product use issue [Unknown]
  - Volvulus [Unknown]
  - Infection [Recovering/Resolving]
  - Off label use [Unknown]
  - Inappropriate schedule of product administration [Unknown]
  - Product use issue [Unknown]

NARRATIVE: CASE EVENT DATE: 20200110
